FAERS Safety Report 11126175 (Version 2)
Quarter: 2015Q2

REPORT INFORMATION
  Report Type: Spontaneous
  Country: AU (occurrence: AU)
  Receive Date: 20150520
  Receipt Date: 20150527
  Transmission Date: 20150821
  Serious: Yes (Other)
  Sender: FDA-Public Use
  Company Number: AU-ABBVIE-15P-008-1393363-00

PATIENT
  Age: 32 Year
  Sex: Female
  Weight: 64.2 kg

DRUGS (6)
  1. THIAMINE [Concomitant]
     Active Substance: THIAMINE
     Indication: VITAMIN SUPPLEMENTATION
     Route: 048
     Dates: start: 20120701
  2. FOLIC ACID. [Concomitant]
     Active Substance: FOLIC ACID
     Indication: PREGNANCY
     Route: 048
     Dates: start: 20120701
  3. NORVIR [Suspect]
     Active Substance: RITONAVIR
     Indication: IMMUNODEFICIENCY
     Route: 048
     Dates: start: 20110822
  4. TENOFOVIR DISOPROXIL FUMARATE [Suspect]
     Active Substance: TENOFOVIR DISOPROXIL FUMARATE
     Indication: IMMUNODEFICIENCY
     Route: 048
     Dates: start: 20110822
  5. PREZISTA [Suspect]
     Active Substance: DARUNAVIR ETHANOLATE
     Route: 048
     Dates: start: 20120705
  6. PREZISTA [Suspect]
     Active Substance: DARUNAVIR ETHANOLATE
     Indication: IMMUNODEFICIENCY
     Route: 048
     Dates: start: 20110822

REACTIONS (4)
  - Exposure during pregnancy [Unknown]
  - Anaemia [Unknown]
  - Vitamin D deficiency [Unknown]
  - Abortion spontaneous [Unknown]
